FAERS Safety Report 10653459 (Version 2)
Quarter: 2014Q4

REPORT INFORMATION
  Report Type: Report from Study
  Country: GB (occurrence: GB)
  Receive Date: 20141216
  Receipt Date: 20141222
  Transmission Date: 20150529
  Serious: Yes (Hospitalization)
  Sender: FDA-Public Use
  Company Number: GB-ROCHE-1506997

PATIENT
  Age: 83 Year
  Sex: Male

DRUGS (7)
  1. FORTISIP [Concomitant]
     Active Substance: CARBOHYDRATES\FATTY ACIDS\MINERALS\PROTEIN\VITAMINS
     Route: 065
     Dates: start: 20120705
  2. ERLOTINIB [Suspect]
     Active Substance: ERLOTINIB
     Route: 048
     Dates: start: 20120629, end: 20120703
  3. LOPERAMIDE [Concomitant]
     Active Substance: LOPERAMIDE
     Indication: PROPHYLAXIS
     Route: 065
     Dates: start: 20120614
  4. ONDANSETRON [Concomitant]
     Active Substance: ONDANSETRON
     Route: 065
     Dates: start: 20120713
  5. CAPECITABINE. [Suspect]
     Active Substance: CAPECITABINE
     Indication: NON-SMALL CELL LUNG CANCER
     Route: 048
     Dates: start: 20120614, end: 20120625
  6. ERLOTINIB [Suspect]
     Active Substance: ERLOTINIB
     Indication: NON-SMALL CELL LUNG CANCER
     Dosage: LAST DOSE PRIOR TO EVENT: 25/JUN/2012
     Route: 048
     Dates: start: 20120614, end: 20120625
  7. METOCLOPRAMIDE. [Concomitant]
     Active Substance: METOCLOPRAMIDE
     Route: 065
     Dates: start: 20120713

REACTIONS (2)
  - Troponin increased [Recovered/Resolved]
  - Arteriospasm coronary [Recovered/Resolved]

NARRATIVE: CASE EVENT DATE: 20120625
